FAERS Safety Report 13467767 (Version 1)
Quarter: 2017Q2

REPORT INFORMATION
  Report Type: Spontaneous
  Country: US (occurrence: US)
  Receive Date: 20170421
  Receipt Date: 20170421
  Transmission Date: 20170830
  Serious: No
  Sender: FDA-Public Use
  Company Number: US-PURDUE-USA-2017-0136197

PATIENT
  Sex: Male
  Weight: 88.44 kg

DRUGS (2)
  1. OXYCODONE HYDROCHLORIDE (SIMILAR TO NDA 22-272) [Suspect]
     Active Substance: OXYCODONE HYDROCHLORIDE
     Indication: PROCEDURAL PAIN
     Dosage: .5 TABLET, BID
     Route: 048
  2. TORISEL [Suspect]
     Active Substance: TEMSIROLIMUS
     Indication: RENAL CANCER
     Dosage: UNK
     Route: 065
     Dates: start: 20161213, end: 20161220

REACTIONS (5)
  - Palpitations [Unknown]
  - Erythema [Unknown]
  - Blood pressure increased [Unknown]
  - Unevaluable event [Unknown]
  - Malaise [Unknown]
